FAERS Safety Report 7952922-2 (Version None)
Quarter: 2011Q4

REPORT INFORMATION
  Report Type: 
  Country: None (occurrence: None)
  Receive Date: 20111201
  Receipt Date: 20111121
  Transmission Date: 20120403
  Serious: Yes (Death, Life-Threatening, Hospitalization)
  Sender: FDA-Public Use
  Company Number: BE-ABBOTT-11P-013-0835531-02

PATIENT
  Sex: Female

DRUGS (27)
  1. TRAMADOL HCL [Concomitant]
     Indication: NEURALGIA
     Dates: start: 20090507
  2. HUMIRA [Suspect]
     Indication: CROHN'S DISEASE
     Route: 058
     Dates: start: 20080916, end: 20110311
  3. CYMBALTA [Concomitant]
     Indication: DEPRESSION
     Dates: start: 20100101
  4. SULFASALAZINE [Concomitant]
     Indication: ARTHRALGIA
     Dates: start: 20100201, end: 20100923
  5. IBRUPROFEN [Concomitant]
     Indication: ARTHRALGIA
     Dates: start: 20100608
  6. PRILOSEC [Concomitant]
     Indication: PROPHYLAXIS
     Dates: start: 20110525, end: 20110626
  7. REDOMEX [Concomitant]
     Indication: NEURALGIA
     Dates: start: 20090101, end: 20110501
  8. OMEPRAZOLE [Concomitant]
     Indication: CROHN'S DISEASE
     Dates: start: 20090101, end: 20110522
  9. CLOPIDOGREL [Concomitant]
     Indication: THROMBOSIS PROPHYLAXIS
     Dates: start: 20110425, end: 20110626
  10. ACETYLSALICYLIC ACID SRT [Concomitant]
     Indication: THROMBOSIS PROPHYLAXIS
     Dates: start: 20110425, end: 20110626
  11. ZOLPIDEM [Concomitant]
     Indication: INSOMNIA
     Dates: end: 20110519
  12. TRAMADOL HCL [Concomitant]
     Indication: PAIN
     Dates: start: 20110423, end: 20110622
  13. EPSIPAM [Concomitant]
     Indication: FIBROMYALGIA
     Dates: start: 20080606
  14. METHOTREXATE [Concomitant]
     Indication: CROHN'S DISEASE
     Dates: start: 20101118
  15. FOLIC ACID [Concomitant]
     Indication: VITAMIN SUPPLEMENTATION
     Dates: start: 20100909, end: 20110626
  16. ACETAMINOPHEN [Concomitant]
     Indication: PAIN
     Dates: start: 20110423, end: 20110621
  17. MINOCYCLINE HCL [Concomitant]
     Indication: SKIN LESION
     Dates: start: 20090616, end: 20090922
  18. MINOCYCLINE HCL [Concomitant]
     Indication: GROIN ABSCESS
  19. DIAZEPAM [Concomitant]
     Indication: ANXIETY
     Dates: start: 20100101
  20. CIPROFLOXACIN [Concomitant]
     Indication: VIITH NERVE PARALYSIS
     Dates: start: 20091201, end: 20100101
  21. METHOTREXATE [Concomitant]
  22. VOLTAPATCH [Concomitant]
     Indication: ARTHRALGIA
     Dates: start: 20101118
  23. PRILOSEC [Concomitant]
     Indication: GASTRIC DISORDER
     Dates: start: 20110523, end: 20110524
  24. NADROPARIN [Concomitant]
     Indication: PROPHYLAXIS
     Dates: start: 20110510, end: 20110525
  25. ESCITALOPRAM [Concomitant]
     Indication: FIBROMYALGIA
     Dates: start: 20080101, end: 20110626
  26. SPIRIVA [Concomitant]
     Indication: BRONCHITIS
     Dates: start: 20090101
  27. VITAMIN B-12 [Concomitant]
     Indication: VITAMIN B12 DEFICIENCY
     Dates: start: 20110101, end: 20110620

REACTIONS (1)
  - LUNG NEOPLASM MALIGNANT [None]
